FAERS Safety Report 18806653 (Version 1)
Quarter: 2021Q1

REPORT INFORMATION
  Report Type: Spontaneous
  Country: JP (occurrence: JP)
  Receive Date: 20210128
  Receipt Date: 20210128
  Transmission Date: 20210419
  Serious: Yes (Other)
  Sender: FDA-Public Use
  Company Number: JP-AMGEN-JPNSP2021014350

PATIENT
  Age: 57 Year
  Sex: Male

DRUGS (3)
  1. NIVOLUMAB [Concomitant]
     Active Substance: NIVOLUMAB
     Indication: RENAL CANCER
     Dosage: 200 MG
     Route: 065
     Dates: start: 201706
  2. SUNITINIB MALATE. [Suspect]
     Active Substance: SUNITINIB MALATE
     Indication: RENAL CANCER
     Dosage: 50MG/DAY
     Route: 048
     Dates: start: 201609, end: 201705
  3. RANMARK [Suspect]
     Active Substance: DENOSUMAB
     Indication: METASTASES TO SPINE
     Dosage: UNK
     Route: 065
     Dates: start: 201609, end: 201711

REACTIONS (4)
  - Anaemia [Unknown]
  - Renal impairment [Unknown]
  - Osteomyelitis [Recovering/Resolving]
  - Osteonecrosis of jaw [Recovering/Resolving]
